FAERS Safety Report 16833311 (Version 1)
Quarter: 2019Q3

REPORT INFORMATION
  Report Type: Spontaneous
  Country: CA (occurrence: CA)
  Receive Date: 20190920
  Receipt Date: 20190920
  Transmission Date: 20191005
  Serious: Yes (Other)
  Sender: FDA-Public Use
  Company Number: CA-TEVA-2019-CA-1110135

PATIENT
  Age: 57 Year
  Sex: Male

DRUGS (2)
  1. PANTOPRAZOLE [Suspect]
     Active Substance: PANTOPRAZOLE
     Indication: OESOPHAGEAL ULCER
     Dosage: 80 MILLIGRAM DAILY;
     Route: 065
  2. ELIQUIS [Interacting]
     Active Substance: APIXABAN
     Indication: THROMBOSIS PROPHYLAXIS
     Dosage: 5 MILLIGRAM DAILY;
     Route: 048

REACTIONS (5)
  - Drug interaction [Unknown]
  - Oesophageal ulcer haemorrhage [Unknown]
  - Pain [Unknown]
  - Drug ineffective [Unknown]
  - Cardiovascular disorder [Unknown]
